FAERS Safety Report 4968007-3 (Version None)
Quarter: 2006Q1

REPORT INFORMATION
  Report Type: 
  Country: None (occurrence: None)
  Receive Date: 20060201
  Receipt Date: 20051021
  Transmission Date: 20060701
  Serious: No
  Sender: FDA-Public Use
  Company Number: 2005PV003446

PATIENT
  Age: 65 Year
  Sex: Male
  Weight: 63.9572 kg

DRUGS (5)
  1. BYETTA [Suspect]
     Indication: DIABETES MELLITUS NON-INSULIN-DEPENDENT
     Dosage: 5 MCG;BID;SC
     Route: 058
     Dates: start: 20050920
  2. ZOCOR [Concomitant]
  3. DIOVAN CT [Concomitant]
  4. UROCIT-K [Concomitant]
  5. MULTIVITAMIN [Concomitant]

REACTIONS (5)
  - DECREASED APPETITE [None]
  - DYSURIA [None]
  - FLUID INTAKE REDUCED [None]
  - THIRST DECREASED [None]
  - WEIGHT DECREASED [None]
